FAERS Safety Report 8563934-2 (Version None)
Quarter: 2012Q3

REPORT INFORMATION
  Report Type: 
  Country: None (occurrence: None)
  Receive Date: 20120803
  Receipt Date: 20120723
  Transmission Date: 20120928
  Serious: Yes (Other)
  Sender: FDA-Public Use
  Company Number: US-009507513-1207USA008647

PATIENT

DRUGS (4)
  1. FOSAMAX [Suspect]
     Dosage: UNK
     Route: 048
     Dates: start: 20050101, end: 20080101
  2. FOSAMAX [Suspect]
     Dosage: UNK
     Route: 048
     Dates: start: 20050101, end: 20080101
  3. IBANDRONATE SODIUM [Suspect]
     Dosage: UNK
     Dates: start: 20050101, end: 20080101
  4. BONIVA [Suspect]
     Dosage: UNK
     Dates: start: 20050101, end: 20080101

REACTIONS (2)
  - FEMUR FRACTURE [None]
  - HIP FRACTURE [None]
